FAERS Safety Report 11069028 (Version 5)
Quarter: 2019Q3

REPORT INFORMATION
  Report Type: Spontaneous
  Country: US (occurrence: US)
  Receive Date: 20150427
  Receipt Date: 20190919
  Transmission Date: 20191004
  Serious: Yes (Hospitalization)
  Sender: FDA-Public Use
  Company Number: US-PFIZER INC-2015140605

PATIENT
  Age: 78 Year
  Sex: Female
  Weight: 78 kg

DRUGS (5)
  1. TIKOSYN [Suspect]
     Active Substance: DOFETILIDE
     Dosage: UNK
     Dates: start: 2014
  2. TIKOSYN [Suspect]
     Active Substance: DOFETILIDE
     Indication: ATRIAL FIBRILLATION
     Dosage: 250 MCG, UNK
     Dates: start: 20140612
  3. TIKOSYN [Suspect]
     Active Substance: DOFETILIDE
     Dosage: 500 MCG (1 CAPSULE EVERY 12 HOURS AT 7 AM IN MORNING AND 7 PM)
     Dates: start: 20140618
  4. MAGNESIUM [Concomitant]
     Active Substance: MAGNESIUM
     Dosage: UNK
  5. TIKOSYN [Suspect]
     Active Substance: DOFETILIDE
     Dosage: UNK

REACTIONS (3)
  - Dysphonia [Not Recovered/Not Resolved]
  - Drug ineffective [Unknown]
  - Blood pressure increased [Unknown]
